FAERS Safety Report 7997953-1 (Version None)
Quarter: 2011Q4

REPORT INFORMATION
  Report Type: 
  Country: None (occurrence: None)
  Receive Date: 20111221
  Receipt Date: 20111219
  Transmission Date: 20120403
  Serious: Yes (Death)
  Sender: FDA-Public Use
  Company Number: PHEH2011US010418

PATIENT
  Sex: Female
  Weight: 77.098 kg

DRUGS (7)
  1. NORVASC [Concomitant]
     Indication: HYPERTENSION
     Dosage: 10 MG, EVERYDAY
     Dates: start: 20110603
  2. METOPROLOL TARTRATE [Concomitant]
     Dosage: 50 MG, DAILY
     Dates: start: 20100201
  3. RESTORIL [Concomitant]
     Dosage: 15 MG, AS NEEDED
     Dates: start: 20110811
  4. GILENYA [Suspect]
     Indication: MULTIPLE SCLEROSIS
     Dosage: 0.5 MG, QD
     Route: 048
     Dates: start: 20111122
  5. AMBIEN [Concomitant]
     Indication: INSOMNIA
     Dosage: UNK UKN, UNK
  6. METOPROLOL TARTRATE [Concomitant]
     Indication: HYPERTENSION
     Dosage: 10 MG, UNK
     Dates: start: 20100201
  7. NAPROXEN SODIUM [Suspect]
     Indication: HEADACHE

REACTIONS (3)
  - HEADACHE [None]
  - DEATH [None]
  - HEART RATE DECREASED [None]
